FAERS Safety Report 24264196 (Version 1)
Quarter: 2024Q3

REPORT INFORMATION
  Report Type: Spontaneous
  Country: US (occurrence: US)
  Receive Date: 20240829
  Receipt Date: 20240829
  Transmission Date: 20241017
  Serious: Yes (Other)
  Sender: PFIZER
  Company Number: US-PFIZER INC-202400244617

PATIENT
  Age: 7 Year
  Sex: Female
  Weight: 29.025 kg

DRUGS (4)
  1. OXBRYTA [Suspect]
     Active Substance: VOXELOTOR
     Indication: Sickle cell anaemia with crisis
     Dosage: UNK
     Dates: start: 2024
  2. FOLIC ACID [Concomitant]
     Active Substance: FOLIC ACID
     Dosage: UNK
  3. HYDROCODONE [Concomitant]
     Active Substance: HYDROCODONE
     Dosage: UNK
  4. HYDROXYZINE [Concomitant]
     Active Substance: HYDROXYZINE HYDROCHLORIDE
     Indication: Anxiety
     Dosage: UNK

REACTIONS (2)
  - Sickle cell anaemia with crisis [Recovered/Resolved]
  - Trichorrhexis [Unknown]

NARRATIVE: CASE EVENT DATE: 20240101
